FAERS Safety Report 25620516 (Version 4)
Quarter: 2025Q4

REPORT INFORMATION
  Report Type: Report from Study
  Country: CA (occurrence: CA)
  Receive Date: 20250730
  Receipt Date: 20251015
  Transmission Date: 20260118
  Serious: Yes (Other)
  Sender: ROCHE
  Company Number: CA-002147023-NVSC2025CA118687

PATIENT
  Age: 60 Year
  Sex: Female

DRUGS (5)
  1. XOLAIR [Suspect]
     Active Substance: OMALIZUMAB
     Indication: Chronic spontaneous urticaria
     Dosage: 300 MG, EVERY 4 WEEKS, FIRST DOSE
     Route: 058
     Dates: start: 20250724
  2. XOLAIR [Suspect]
     Active Substance: OMALIZUMAB
     Route: 065
  3. RANITIDINE [Concomitant]
     Active Substance: RANITIDINE
     Indication: Product used for unknown indication
     Dosage: 150 MG, BID
     Route: 065
     Dates: start: 20250822
  4. LIPITOR [Concomitant]
     Active Substance: ATORVASTATIN CALCIUM
     Indication: Product used for unknown indication
     Dosage: 20 MG, QD
     Route: 065
     Dates: start: 20250913
  5. VITAMIN D [Concomitant]
     Active Substance: VITAMIN D NOS
     Dosage: DOSAGE FORM, QW 10,000 UNIT 1 TAB/WEEK?G.K.4.R.9.1 PHARMACEUTICAL DOSE FORM
     Route: 065

REACTIONS (9)
  - Hypertension [Unknown]
  - Headache [Not Recovered/Not Resolved]
  - Tinnitus [Not Recovered/Not Resolved]
  - Drug ineffective [Unknown]
  - Fatigue [Recovered/Resolved]
  - Nausea [Unknown]
  - Urticaria [Not Recovered/Not Resolved]
  - Contusion [Unknown]
  - Blood cholesterol increased [Unknown]

NARRATIVE: CASE EVENT DATE: 20250724
